FAERS Safety Report 7202806-2 (Version None)
Quarter: 2010Q4

REPORT INFORMATION
  Report Type: 
  Country: None (occurrence: None)
  Receive Date: 20101229
  Receipt Date: 20101216
  Transmission Date: 20110411
  Serious: Yes (Hospitalization, Other)
  Sender: FDA-Public Use
  Company Number: FR-JNJCH-2010029494

PATIENT
  Age: 7 Year
  Sex: Male

DRUGS (2)
  1. VIRLIX [Suspect]
     Indication: HYPERSENSITIVITY
     Dosage: TEXT:5 DROPS, ONCE
     Route: 048
     Dates: start: 20101127, end: 20101127
  2. CLARITIN [Concomitant]
     Indication: ALLERGIC RESPIRATORY DISEASE
     Dosage: TEXT:UNKNOWN
     Route: 065

REACTIONS (9)
  - FALL [None]
  - GRUNTING [None]
  - HEAD INJURY [None]
  - HYPERHIDROSIS [None]
  - LOSS OF CONSCIOUSNESS [None]
  - MALAISE [None]
  - NAUSEA [None]
  - OCULOGYRIC CRISIS [None]
  - TRAUMATIC HAEMATOMA [None]
